FAERS Safety Report 15405915 (Version 1)
Quarter: 2018Q3

REPORT INFORMATION
  Report Type: Spontaneous
  Country: US (occurrence: US)
  Receive Date: 20180918
  Receipt Date: 20180918
  Transmission Date: 20181010
  Serious: Yes (Disabling, Other)
  Sender: FDA-Public Use
  Company Number: None

PATIENT
  Age: 55 Year
  Sex: Male
  Weight: 90 kg

DRUGS (7)
  1. STOMACH PILLS [Concomitant]
  2. APPLE CIDER VINEGAR [Concomitant]
     Active Substance: APPLE CIDER VINEGAR
  3. IBUP [Concomitant]
  4. GOODIES VITAMIN B?12 [Concomitant]
  5. HYDROCHLOROTHIAZIDE USP 12.5MG TABLETS.. 16729?0182?01 ..PW5264 [Suspect]
     Active Substance: HYDROCHLOROTHIAZIDE
     Indication: BLOOD PRESSURE MEASUREMENT
     Dosage: ?          QUANTITY:30 DF DOSAGE FORM;?
     Route: 048
     Dates: start: 20170717, end: 20180908
  6. ARTHRITIS PILLS MUSCLE RELAXERS [Concomitant]
  7. TYENOL PM [Concomitant]

REACTIONS (3)
  - Dizziness [None]
  - Loss of consciousness [None]
  - Epistaxis [None]

NARRATIVE: CASE EVENT DATE: 20180115
